FAERS Safety Report 7213757-1 (Version None)
Quarter: 2011Q1

REPORT INFORMATION
  Report Type: 
  Country: None (occurrence: None)
  Receive Date: 20110106
  Receipt Date: 20101222
  Transmission Date: 20110831
  Serious: Yes (Hospitalization, Other)
  Sender: FDA-Public Use
  Company Number: FR-PFIZER INC-2010177032

PATIENT
  Age: 83 Year
  Sex: Male

DRUGS (9)
  1. TAHOR [Suspect]
     Indication: HYPERCHOLESTEROLAEMIA
     Dosage: 20 MG
     Route: 048
     Dates: end: 20101011
  2. TAHOR [Suspect]
     Dosage: 20 MG, IN THE MORNING
     Dates: start: 20101028
  3. PERINDOPRIL ERBUMINE [Suspect]
     Indication: HYPERTENSION
     Dosage: 2 MG
     Route: 048
     Dates: end: 20101011
  4. SOLU-MEDROL [Suspect]
     Dosage: 80 MG, 3X/DAY
     Route: 048
     Dates: start: 20101001, end: 20101011
  5. NEXIUM [Suspect]
     Indication: ABDOMINAL PAIN UPPER
     Dosage: 40 MG, UNK
     Route: 048
     Dates: start: 20101007, end: 20101011
  6. EUPANTOL [Suspect]
     Indication: ABDOMINAL PAIN UPPER
     Dosage: 40 MG, ONCE
     Route: 048
     Dates: start: 20101001, end: 20101007
  7. AMLOR [Concomitant]
     Dosage: 5 MG, ONCE
  8. DAFALGAN [Suspect]
     Indication: PAIN
     Dosage: 500 MG, 6 PER DAY
     Route: 048
     Dates: start: 20100918, end: 20101012
  9. LANSOPRAZOLE [Concomitant]
     Dosage: 15 MG, 1X/DAY
     Dates: end: 20100918

REACTIONS (2)
  - EPILEPSY [None]
  - THROMBOCYTOPENIA [None]
